FAERS Safety Report 14909200 (Version 1)
Quarter: 2018Q2

REPORT INFORMATION
  Report Type: Spontaneous
  Country: US (occurrence: US)
  Receive Date: 20180517
  Receipt Date: 20180517
  Transmission Date: 20180711
  Serious: Yes (Hospitalization)
  Sender: FDA-Public Use
  Company Number: US-SAOL THERAPEUTICS-2018SAO00737

PATIENT
  Sex: Male

DRUGS (1)
  1. BACLOFEN. [Suspect]
     Active Substance: BACLOFEN
     Indication: MUSCLE SPASTICITY
     Dosage: 660 ?G, \DAY
     Route: 037

REACTIONS (3)
  - Acute respiratory failure [Unknown]
  - Device dislocation [Unknown]
  - Seizure [Unknown]

NARRATIVE: CASE EVENT DATE: 20180503
